FAERS Safety Report 5578541-3 (Version None)
Quarter: 2007Q4

REPORT INFORMATION
  Report Type: 
  Country: None (occurrence: None)
  Receive Date: 20071227
  Receipt Date: 20071218
  Transmission Date: 20080405
  Serious: Yes (Hospitalization, Other)
  Sender: FDA-Public Use
  Company Number: A-CH2007-18905

PATIENT
  Age: 56 Year
  Sex: Female

DRUGS (7)
  1. TRACLEER [Suspect]
     Indication: SKIN ULCER
     Dosage: 62.5 MG, BID, ORAL; 125 MG, BID, ORAL
     Route: 048
     Dates: start: 20071101
  2. TRACLEER [Suspect]
     Indication: SKIN ULCER
     Dosage: 62.5 MG, BID, ORAL; 125 MG, BID, ORAL
     Route: 048
     Dates: start: 20071211
  3. ASPIRIN [Concomitant]
  4. LEVOTHYROXINE SODIUM [Concomitant]
  5. OMEPRAZOLE [Concomitant]
  6. COLCHICUM JTL LIQ [Concomitant]
  7. BETAHISTINE (BETAHISTINE) [Concomitant]

REACTIONS (7)
  - CHILLS [None]
  - CHROMATURIA [None]
  - HEADACHE [None]
  - HEPATIC ENZYME INCREASED [None]
  - MIGRAINE [None]
  - NAUSEA [None]
  - PYREXIA [None]
